FAERS Safety Report 4850083-X (Version None)
Quarter: 2005Q4

REPORT INFORMATION
  Report Type: 
  Country: None (occurrence: None)
  Receive Date: 20051107
  Receipt Date: 20050422
  Transmission Date: 20060501
  Serious: Yes (Other)
  Sender: FDA-Public Use
  Company Number: PHEH2005US04675

PATIENT
  Sex: Female

DRUGS (6)
  1. ESTROGEN(ESTROGENS) [Suspect]
     Indication: HORMONE REPLACEMENT THERAPY
  2. PREMPHASE (PREMARIN;CYCRIN 14/14) [Suspect]
  3. PREMARIN [Suspect]
  4. PROVERA [Suspect]
  5. PREFEST [Suspect]
  6. MEDROXYPROGESTERONE ACETATE [Suspect]

REACTIONS (5)
  - BREAST CANCER [None]
  - BREAST OPERATION [None]
  - MASTECTOMY [None]
  - PLASTIC SURGERY [None]
  - RADIATION SKIN INJURY [None]
